FAERS Safety Report 9767474 (Version 1)
Quarter: 2013Q3

REPORT INFORMATION
  Report Type: Spontaneous
  Country: US (occurrence: None)
  Receive Date: 20130827
  Receipt Date: 20130827
  Transmission Date: 20140515
  Serious: Yes (Hospitalization)
  Sender: FDA-Public Use
  Company Number: 163-C4047-13054855

PATIENT
  Age: 60 Year
  Sex: Female
  Weight: 85.73 kg

DRUGS (18)
  1. CC-4047 [Suspect]
     Indication: PLASMA CELL MYELOMA
     Dosage: 4 MG, 21 IN 28 D, PO
     Route: 048
     Dates: start: 20130517, end: 20130530
  2. DEXAMETHASONE (DEXAMETHASONE) (UNKNOWN) [Suspect]
     Indication: PLASMA CELL MYELOMA
     Dosage: 40 MG, 4 IN 28 D, UNK
     Dates: start: 20130517, end: 20130530
  3. CLARITHROMYCIN [Suspect]
     Indication: PLASMA CELL MYELOMA
     Dosage: 1000 MG, 56 IN 28 D, UNK
     Dates: start: 20130517, end: 20130530
  4. AMLODIPINE BESYLATE (AMLODIPINE BESILATE) (TABLETS) [Concomitant]
  5. ASPIRIN (ACETYLSALICYLIC ACID) (TABLETS) [Concomitant]
  6. DULOXETINE HCL (DULOXETINE HYDROCHLORIDE) (CAPSULES) [Concomitant]
  7. ENALAPRIL MALEATE (ENALAPRIL MALEATE) (TABLETS) (ENALAPRIL MALEATE) [Concomitant]
  8. FUROSEMIDE (FUROSEMIDE) (TABLETS) [Concomitant]
  9. GABAPENTIN (GABAPENTIN) (TABLETS) [Concomitant]
  10. LEVOTHYROXINE SODIUM (LEVOTHYROXINE SODIUM) (TABLETS) [Concomitant]
  11. NUCYNTA (TAPENTADOL HYDROCHLORIDE) (TABLETS) [Concomitant]
  12. OMEPRAZOLE (OMEPRAZOLE) (CAPSULES) [Concomitant]
  13. OXYCONTIN (OXYCODONE HYDROCHLORIDE) (TABLETS) [Concomitant]
  14. PREMARIN (ESTROGENS CONJUGATED) (CREAM) [Concomitant]
  15. SIMVASTATIN [Concomitant]
  16. VALACYCLOVIR HCL (VALACICLOVIR HYDROCHLORIDE) (TABLETS) [Concomitant]
  17. VEREGEN (TEA, GREEN) (OINTMENT) [Concomitant]
  18. ZOLEDRONIC ACID (ZOLEDRONIC ACID) (INJECTION) [Concomitant]

REACTIONS (4)
  - Pathological fracture [None]
  - Pain in extremity [None]
  - Musculoskeletal pain [None]
  - Drug ineffective [None]
